FAERS Safety Report 9398910 (Version 4)
Quarter: 2013Q3

REPORT INFORMATION
  Report Type: Spontaneous
  Country: US (occurrence: US)
  Receive Date: 20130712
  Receipt Date: 20130827
  Transmission Date: 20140515
  Serious: Yes (Death, Hospitalization)
  Sender: FDA-Public Use
  Company Number: US-BAXTER-2013BAX026502

PATIENT
  Age: 82 Year
  Sex: Female

DRUGS (4)
  1. DIANEAL LOW CALCIUM [Suspect]
     Indication: PERITONEAL DIALYSIS
     Route: 033
     Dates: start: 2012, end: 201308
  2. DIANEAL LOW CALCIUM [Suspect]
     Route: 033
     Dates: start: 2012, end: 201308
  3. DIANEAL LOW CALCIUM [Suspect]
     Indication: PERITONEAL DIALYSIS
     Route: 033
     Dates: start: 201212, end: 201308
  4. DIANEAL PD2 [Suspect]
     Indication: PERITONEAL DIALYSIS
     Route: 033
     Dates: end: 201308

REACTIONS (5)
  - Death [Fatal]
  - Cerebrovascular accident [Recovering/Resolving]
  - Asthenia [Unknown]
  - Peritonitis bacterial [Not Recovered/Not Resolved]
  - Hypophagia [Unknown]
